FAERS Safety Report 8695821 (Version 2)
Quarter: 2013Q4

REPORT INFORMATION
  Report Type: Spontaneous
  Country: US (occurrence: US)
  Receive Date: 20120731
  Receipt Date: 20131105
  Transmission Date: 20140711
  Serious: Yes (Hospitalization, Other)
  Sender: FDA-Public Use
  Company Number: US-009507513-1207USA010761

PATIENT
  Age: 65 Year
  Sex: Female

DRUGS (5)
  1. ZOCOR [Suspect]
     Dosage: 40 MG, UNK
     Route: 048
  2. PRINIVIL [Suspect]
     Dosage: 10 MG, UNK
  3. CITALOPRAM [Suspect]
     Dosage: 20 MG, UNK
  4. PREDNISONE [Suspect]
  5. HYDROXYCUT [Suspect]
     Dosage: UNK

REACTIONS (4)
  - Cerebral infarction [Unknown]
  - Cerebral vasoconstriction [Unknown]
  - Hypotension [Unknown]
  - Hypertension [Unknown]
